FAERS Safety Report 4931399-5 (Version None)
Quarter: 2006Q1

REPORT INFORMATION
  Report Type: 
  Country: None (occurrence: None)
  Receive Date: 20060303
  Receipt Date: 20060217
  Transmission Date: 20060701
  Serious: Yes (Other)
  Sender: FDA-Public Use
  Company Number: PHBS2006JP02757

PATIENT

DRUGS (2)
  1. DIOVAN [Suspect]
     Dosage: 40 MG/DAY
     Route: 048
  2. KERLONG [Concomitant]
     Dosage: UNK, UNK
     Route: 048

REACTIONS (1)
  - CARDIOMEGALY [None]
